FAERS Safety Report 5323551-4 (Version None)
Quarter: 2007Q2

REPORT INFORMATION
  Report Type: 
  Country: None (occurrence: None)
  Receive Date: 20070514
  Receipt Date: 20070509
  Transmission Date: 20071010
  Serious: Yes (Hospitalization)
  Sender: FDA-Public Use
  Company Number: SE-BRISTOL-MYERS SQUIBB COMPANY-13720065

PATIENT
  Sex: Male

DRUGS (5)
  1. ABILIFY [Suspect]
     Indication: BIPOLAR I DISORDER
     Dosage: INITIAL DOSAGE WAS 10MG
     Dates: start: 20061201
  2. ABILIFY [Suspect]
     Indication: SCHIZOID PERSONALITY DISORDER
     Dosage: INITIAL DOSAGE WAS 10MG
     Dates: start: 20061201
  3. ABILIFY [Suspect]
     Dates: start: 20060201
  4. ABILIFY [Suspect]
     Dates: start: 20060201
  5. ZOLOFT [Concomitant]

REACTIONS (2)
  - EMOTIONAL DISTRESS [None]
  - SLEEP APNOEA SYNDROME [None]
